FAERS Safety Report 21700975 (Version 2)
Quarter: 2022Q4

REPORT INFORMATION
  Report Type: Spontaneous
  Country: US (occurrence: US)
  Receive Date: 20221208
  Receipt Date: 20221219
  Transmission Date: 20230113
  Serious: Yes (Hospitalization)
  Sender: FDA-Public Use
  Company Number: US-TEVA-2022-US-2832653

PATIENT
  Age: 77 Year
  Sex: Male

DRUGS (2)
  1. CIPROFLOXACIN [Suspect]
     Active Substance: CIPROFLOXACIN
     Indication: Antibiotic prophylaxis
     Dosage: 1000 MILLIGRAM DAILY;
     Route: 048
  2. AMOXICILLIN\CLAVULANIC ACID [Suspect]
     Active Substance: AMOXICILLIN\CLAVULANIC ACID
     Indication: Antibiotic prophylaxis
     Dosage: AMOXICILLIN: 875 MG; CLAVULANIC ACID: 125 MG , ] 875/125MG TWICE DAILY
     Route: 048

REACTIONS (5)
  - Stenotrophomonas infection [Recovering/Resolving]
  - Skin infection [Recovering/Resolving]
  - Soft tissue infection [Recovering/Resolving]
  - Infection [Recovering/Resolving]
  - Necrosis [Not Recovered/Not Resolved]
